FAERS Safety Report 9432390 (Version 2)
Quarter: 2013Q3

REPORT INFORMATION
  Report Type: Spontaneous
  Country: FR (occurrence: None)
  Receive Date: 20130729
  Receipt Date: 20130805
  Transmission Date: 20140515
  Serious: Yes (Death)
  Sender: FDA-Public Use
  Company Number: SYM-2013-06685

PATIENT
  Age: 89 Year
  Sex: Female

DRUGS (6)
  1. MONO-TILDIEM [Suspect]
     Indication: HYPERTENSION
     Route: 048
     Dates: start: 20130625, end: 20130625
  2. LOXEN [Suspect]
     Indication: HYPERTENSION
     Route: 048
     Dates: start: 20130611, end: 20130624
  3. PREVISCAN (PENTOXIFYLLINE) (PENTOXIFYLLINE) [Concomitant]
  4. SECTRAL (ACEBUTOLOL HYDROCHLORIDE) (ACEBUTOLOL HYDROCHLORIDE) [Concomitant]
  5. SERESTA (OXAZEPAM) (OXAZEPAM) [Concomitant]
  6. RISPERDAL (RISPERIDONE) (RISPERIDONE) [Concomitant]

REACTIONS (4)
  - Hypotension [None]
  - Bradycardia [None]
  - Confusional state [None]
  - Delusion [None]
